FAERS Safety Report 9486627 (Version 1)
Quarter: 2013Q3

REPORT INFORMATION
  Report Type: Spontaneous
  Country: BR (occurrence: BR)
  Receive Date: 20130829
  Receipt Date: 20130829
  Transmission Date: 20140515
  Serious: Yes (Other)
  Sender: FDA-Public Use
  Company Number: BR-PFIZER INC-2013245353

PATIENT
  Age: 67 Year
  Sex: Female
  Weight: 73 kg

DRUGS (7)
  1. XALATAN [Suspect]
     Dosage: UNK
     Dates: start: 2011
  2. XALATAN [Suspect]
     Dosage: UNK
     Dates: start: 2003
  3. XALATAN [Suspect]
     Dosage: UNK
     Dates: start: 19900818, end: 201308
  4. ASPIRINA [Concomitant]
     Indication: VASCULAR GRAFT
     Dosage: UNK
     Dates: start: 2009
  5. SYNTHROID [Concomitant]
     Indication: THYROID DISORDER
     Dosage: UNK
     Dates: start: 1993
  6. HIGROTON [Concomitant]
     Indication: BLOOD PRESSURE ABNORMAL
     Dosage: UNK, AS NEEDED
  7. GLYCERIN [Concomitant]
     Dosage: UNK

REACTIONS (2)
  - Cataract [Unknown]
  - Drug ineffective [Unknown]
